FAERS Safety Report 8425259-5 (Version None)
Quarter: 2012Q2

REPORT INFORMATION
  Report Type: 
  Country: None (occurrence: None)
  Receive Date: 20120604
  Receipt Date: 20120524
  Transmission Date: 20120825
  Serious: Yes (Hospitalization)
  Sender: FDA-Public Use
  Company Number: CA-008481

PATIENT
  Age: 73 Year
  Sex: Male
  Weight: 69 kg

DRUGS (6)
  1. FIRMAGON [Suspect]
     Indication: PROSTATE CANCER
     Dosage: (240 MG QD SUBCUTANEOUS), (80 MG 1X/MONTH SUBCUTANEOUS)
     Route: 058
     Dates: start: 20120518
  2. FIRMAGON [Suspect]
     Indication: PROSTATE CANCER
     Dosage: (240 MG QD SUBCUTANEOUS), (80 MG 1X/MONTH SUBCUTANEOUS)
     Route: 058
     Dates: start: 20120423, end: 20120423
  3. ALBUTEROL [Concomitant]
  4. PERINDOPRIL ERBUMINE [Concomitant]
  5. SPIRIVA [Concomitant]
  6. SYMBICORT [Concomitant]

REACTIONS (8)
  - HEART RATE INCREASED [None]
  - TREMOR [None]
  - APHASIA [None]
  - FATIGUE [None]
  - DYSPNOEA [None]
  - HYPERHIDROSIS [None]
  - BLOOD PRESSURE INCREASED [None]
  - MALAISE [None]
